FAERS Safety Report 4819811-3 (Version None)
Quarter: 2005Q4

REPORT INFORMATION
  Report Type: 
  Country: None (occurrence: None)
  Receive Date: 20051102
  Receipt Date: 20051018
  Transmission Date: 20060501
  Serious: Yes (Hospitalization)
  Sender: FDA-Public Use
  Company Number: JP-2005-021578

PATIENT
  Age: 54 Year
  Sex: Female

DRUGS (3)
  1. BETASERON [Suspect]
     Indication: MULTIPLE SCLEROSIS
     Dates: start: 20020101
  2. RIVOTRIL (CLONZEPAM) [Concomitant]
  3. FAMOTIDINE [Concomitant]

REACTIONS (5)
  - CEREBRAL HAEMORRHAGE [None]
  - DEPRESSED LEVEL OF CONSCIOUSNESS [None]
  - FALL [None]
  - PSYCHIATRIC SYMPTOM [None]
  - RASH [None]
